FAERS Safety Report 10615084 (Version 1)
Quarter: 2014Q4

REPORT INFORMATION
  Report Type: Other
  Country: DE (occurrence: DE)
  Receive Date: 20141201
  Receipt Date: 20141201
  Transmission Date: 20150529
  Serious: Yes (Other)
  Sender: FDA-Public Use
  Company Number: DE-LUPIN PHARMACEUTICALS INC.-E2B_00002802

PATIENT
  Age: 1 Day
  Sex: Male
  Weight: 3.58 kg

DRUGS (7)
  1. VENLAFAXINE [Suspect]
     Active Substance: VENLAFAXINE HYDROCHLORIDE
     Indication: ALCOHOLISM
     Dosage: PATERNAL
     Route: 050
     Dates: start: 20130920, end: 20141119
  2. QUETIAPINE [Suspect]
     Active Substance: QUETIAPINE
     Indication: BORDERLINE PERSONALITY DISORDER
     Dosage: MATERNAL EXPOSURE
     Route: 064
     Dates: start: 20130920, end: 20140623
  3. VENLAFAXINE [Suspect]
     Active Substance: VENLAFAXINE HYDROCHLORIDE
     Indication: BORDERLINE PERSONALITY DISORDER
     Dosage: 225 [MG/D ]/ DOSAGE BETWEEN 225 AND 75 MG/D. (MATERNAL)
     Route: 064
     Dates: start: 20130920, end: 20140623
  4. NEMEXIN [Concomitant]
     Indication: ALCOHOLISM
     Route: 064
     Dates: start: 20130920, end: 20131119
  5. FOLIO FORTE [Concomitant]
     Active Substance: FOLIC ACID\VITAMINS
     Indication: PROPHYLAXIS OF NEURAL TUBE DEFECT
     Dosage: 0.8 [MG/D ]
     Route: 064
     Dates: start: 20130920, end: 20140623
  6. QUETIAPINE [Suspect]
     Active Substance: QUETIAPINE
     Dosage: 75 (MG/D) IF REQUIRED; MAY BE LONGER (PATERNAL EXPOSURE)
     Route: 050
     Dates: start: 20130920, end: 20140623
  7. VENLAFAXINE [Suspect]
     Active Substance: VENLAFAXINE HYDROCHLORIDE
     Route: 064
     Dates: start: 20130920, end: 20131119

REACTIONS (3)
  - Exposure via father [Unknown]
  - Respiratory disorder neonatal [Recovered/Resolved]
  - Foetal exposure during pregnancy [Unknown]

NARRATIVE: CASE EVENT DATE: 20140623
